FAERS Safety Report 19755757 (Version 3)
Quarter: 2022Q3

REPORT INFORMATION
  Report Type: Spontaneous
  Country: US (occurrence: US)
  Receive Date: 20210827
  Receipt Date: 20220802
  Transmission Date: 20221026
  Serious: Yes (Hospitalization)
  Sender: FDA-Public Use
  Company Number: US-CATALYST PHARMACEUTICALS, INC-2021CAT00379

PATIENT
  Sex: Female

DRUGS (15)
  1. FIRDAPSE [Suspect]
     Active Substance: AMIFAMPRIDINE PHOSPHATE
     Indication: Myasthenic syndrome
     Dosage: UNK
     Route: 048
     Dates: start: 202102, end: 2021
  2. FIRDAPSE [Suspect]
     Active Substance: AMIFAMPRIDINE PHOSPHATE
     Dosage: 2 TABLETS (20 MG), 4X/DAY
     Route: 048
     Dates: start: 2021
  3. FIRDAPSE [Suspect]
     Active Substance: AMIFAMPRIDINE PHOSPHATE
     Dosage: 2 TABLETS (20 MG), 4X/DAY
     Route: 048
  4. ASPIRIN [Concomitant]
     Active Substance: ASPIRIN
     Dosage: 81 MG, 1X/DAY
  5. HIGH DOSE VITAMIN D [Concomitant]
  6. ZINC [Concomitant]
     Active Substance: ZINC
  7. VITAMINS [Concomitant]
     Active Substance: VITAMINS
  8. ZYATHROPINE (PRESUMED AZATHIOPRINE) [Concomitant]
  9. DIETARY SUPPLEMENT [Concomitant]
     Active Substance: DIETARY SUPPLEMENT
  10. HUMAN IMMUNOGLOBULIN G [Concomitant]
     Active Substance: HUMAN IMMUNOGLOBULIN G
     Dosage: 120 G, 1X/WEEK
  11. UNSPECIFIED INGREDIENT [Concomitant]
     Active Substance: UNSPECIFIED INGREDIENT
     Dosage: 1.5 L, 1X/WEEK
  12. HYDROXYCHLOROQUINE [Concomitant]
     Active Substance: HYDROXYCHLOROQUINE
     Dosage: 400 MG, 1X/DAY
  13. XARELTO [Concomitant]
     Active Substance: RIVAROXABAN
     Dosage: 20 MG, 1X/DAY
  14. CELLCEPT [Concomitant]
     Active Substance: MYCOPHENOLATE MOFETIL
     Dosage: 1000 MG, 1X/DAY
  15. METHYLPREDNISOLONE STEROID PACK [Concomitant]
     Dosage: UNK, AS NEEDED

REACTIONS (4)
  - Neurological symptom [Recovered/Resolved]
  - Allergy prophylaxis [Recovered/Resolved]
  - Dyspnoea [Recovered/Resolved]
  - Systemic lupus erythematosus rash [Not Recovered/Not Resolved]

NARRATIVE: CASE EVENT DATE: 20210101
